FAERS Safety Report 18049996 (Version 3)
Quarter: 2023Q1

REPORT INFORMATION
  Report Type: Spontaneous
  Country: US (occurrence: US)
  Receive Date: 20200721
  Receipt Date: 20230223
  Transmission Date: 20230418
  Serious: Yes (Other)
  Sender: FDA-Public Use
  Company Number: US-JNJFOC-20200726751

PATIENT
  Age: 11 Year
  Sex: Male

DRUGS (4)
  1. RISPERDAL [Suspect]
     Active Substance: RISPERIDONE
     Indication: Product used for unknown indication
     Dosage: IN VARYING DOSES OF 0.25 MG, 0.5 MG, 0.75 MG, 1 MG AND 3 MG IN VARYING FREQUENCIES OF IN MORNING AND
     Route: 048
     Dates: start: 20070608, end: 2008
  2. RISPERDAL [Suspect]
     Active Substance: RISPERIDONE
     Dosage: IN VARYING DOSES OF 0.5 MG, 0.75 MG AND 2 MG IN VARYING FREQUENCIES OF IN MORNING AND/OR AT BEDTIME
     Route: 048
     Dates: start: 20090109
  3. ZOLOFT [Suspect]
     Active Substance: SERTRALINE HYDROCHLORIDE
     Indication: Product used for unknown indication
     Dosage: IN VARYING DOSES OF 75 MG AND 100 MG IN VARYING FREQUENCIES OF AT BEDTIME AND DAILY
     Route: 065
  4. SEROQUEL [Suspect]
     Active Substance: QUETIAPINE FUMARATE
     Indication: Product used for unknown indication
     Dosage: IN VARYING DOSES OF 50 MG, 100 MG, 125 MG
     Route: 065
     Dates: end: 2007

REACTIONS (3)
  - Hallucination, auditory [Unknown]
  - Emotional disorder [Unknown]
  - Gynaecomastia [Unknown]

NARRATIVE: CASE EVENT DATE: 20070618
